FAERS Safety Report 5081751-5 (Version None)
Quarter: 2006Q3

REPORT INFORMATION
  Report Type: 
  Country: None (occurrence: None)
  Receive Date: 20060816
  Receipt Date: 20060531
  Transmission Date: 20061208
  Serious: Yes (Hospitalization, Disabling)
  Sender: FDA-Public Use
  Company Number: US-ROCHE-450137

PATIENT
  Age: 82 Year
  Sex: Female
  Weight: 56.7 kg

DRUGS (7)
  1. BONIVA [Suspect]
     Indication: OSTEOPOROSIS
     Route: 048
     Dates: start: 20050829, end: 20060707
  2. SOTALOL HCL [Concomitant]
     Indication: ATRIAL FIBRILLATION
     Route: 048
     Dates: start: 20030615
  3. NITROGLYCERIN [Concomitant]
     Indication: CHEST PAIN
     Route: 048
     Dates: start: 20030615
  4. FOLIC ACID [Concomitant]
     Route: 048
  5. VIT. B12 [Concomitant]
     Route: 030
  6. FISH OIL [Concomitant]
     Dosage: TAKEN EVERDAY
     Route: 048
  7. ASPIRIN [Concomitant]
     Indication: CARDIOVASCULAR EVENT PROPHYLAXIS
     Route: 048
     Dates: start: 20030615

REACTIONS (2)
  - ANAEMIA [None]
  - RENAL CELL CARCINOMA STAGE UNSPECIFIED [None]
